FAERS Safety Report 15227424 (Version 1)
Quarter: 2018Q3

REPORT INFORMATION
  Report Type: Spontaneous
  Country: JP (occurrence: JP)
  Receive Date: 20180801
  Receipt Date: 20180801
  Transmission Date: 20181010
  Serious: Yes (Hospitalization)
  Sender: FDA-Public Use
  Company Number: JP-SHENZHEN TECHDOW PHARMACEUTICAL CO. LTD-JP-2018TEC0000038

PATIENT
  Age: 21 Year
  Sex: Female

DRUGS (3)
  1. HEPARIN SODIUM INJECTION USP, PRESERVATIVE FREE [Suspect]
     Active Substance: HEPARIN SODIUM
     Indication: COAGULOPATHY
     Dosage: UNK
  2. HEPARIN SODIUM INJECTION USP, PRESERVATIVE FREE [Suspect]
     Active Substance: HEPARIN SODIUM
     Dosage: UNK, DOSE INCREASED FOR TARGET ACT
  3. HEPARIN SODIUM INJECTION USP, PRESERVATIVE FREE [Suspect]
     Active Substance: HEPARIN SODIUM
     Dosage: UNK, DOSE DECREASED FOR TARGET ACT

REACTIONS (3)
  - Mucosal haemorrhage [Recovering/Resolving]
  - Vascular pseudoaneurysm ruptured [Recovering/Resolving]
  - Rectal haemorrhage [Recovering/Resolving]
